FAERS Safety Report 4791929-3 (Version None)
Quarter: 2005Q4

REPORT INFORMATION
  Report Type: 
  Country: None (occurrence: None)
  Receive Date: 20051005
  Receipt Date: 20050920
  Transmission Date: 20060501
  Serious: Yes (Hospitalization)
  Sender: FDA-Public Use
  Company Number: FR_050205903

PATIENT
  Age: 64 Year
  Sex: Female

DRUGS (1)
  1. ZYPREXA [Suspect]
     Indication: BIPOLAR I DISORDER
     Dosage: 20 MG DAY
     Dates: start: 20030801

REACTIONS (7)
  - ANAEMIA [None]
  - HAEMATOLOGY TEST ABNORMAL [None]
  - HYPERTHERMIA [None]
  - NEUTROPENIA [None]
  - NIGHT SWEATS [None]
  - THROMBOCYTOPENIA [None]
  - TUBERCULOSIS [None]
